FAERS Safety Report 9736978 (Version 2)
Quarter: 2015Q3

REPORT INFORMATION
  Report Type: Spontaneous
  Country: US (occurrence: US)
  Receive Date: 20131206
  Receipt Date: 20150804
  Transmission Date: 20151125
  Serious: No
  Sender: FDA-Public Use
  Company Number: US-GILEAD-2009-0023012

PATIENT
  Age: 69 Year
  Sex: Female
  Weight: 89.81 kg

DRUGS (32)
  1. LASIX [Concomitant]
     Active Substance: FUROSEMIDE
  2. ADVAIR HFA [Concomitant]
     Active Substance: FLUTICASONE PROPIONATE\SALMETEROL XINAFOATE
  3. COLCHICINE. [Concomitant]
     Active Substance: COLCHICINE
  4. RESTASIS [Concomitant]
     Active Substance: CYCLOSPORINE
  5. BONIVA [Concomitant]
     Active Substance: IBANDRONATE SODIUM
  6. ZOCOR [Concomitant]
     Active Substance: SIMVASTATIN
  7. SPIRIVA [Concomitant]
     Active Substance: TIOTROPIUM BROMIDE MONOHYDRATE
  8. JANUVIA [Concomitant]
     Active Substance: SITAGLIPTIN PHOSPHATE
  9. GLIMEPIRIDE. [Concomitant]
     Active Substance: GLIMEPIRIDE
  10. XOPENEX [Concomitant]
     Active Substance: LEVALBUTEROL HYDROCHLORIDE
  11. ULTRAM [Concomitant]
     Active Substance: TRAMADOL HYDROCHLORIDE
  12. NEURONTIN [Concomitant]
     Active Substance: GABAPENTIN
  13. VITAMIN D [Concomitant]
     Active Substance: CHOLECALCIFEROL
  14. AMLODIPINE [Concomitant]
     Active Substance: AMLODIPINE BESYLATE
  15. OXYGEN. [Concomitant]
     Active Substance: OXYGEN
  16. ELAVIL [Concomitant]
     Active Substance: AMITRIPTYLINE HYDROCHLORIDE
  17. DEEP SEA NASAL SPRAY [Concomitant]
  18. PRANDIN [Concomitant]
     Active Substance: REPAGLINIDE
  19. ZITHROMAX [Concomitant]
     Active Substance: AZITHROMYCIN DIHYDRATE
  20. PHENOBARBITAL. [Concomitant]
     Active Substance: PHENOBARBITAL
  21. MAG-OX [Concomitant]
     Active Substance: MAGNESIUM OXIDE
  22. LETAIRIS [Suspect]
     Active Substance: AMBRISENTAN
     Indication: PULMONARY ARTERIAL HYPERTENSION
     Route: 048
     Dates: start: 20080923
  23. LEVOXYL [Concomitant]
     Active Substance: LEVOTHYROXINE SODIUM
  24. VENTAVIS [Concomitant]
     Active Substance: ILOPROST
  25. REVATIO [Concomitant]
     Active Substance: SILDENAFIL CITRATE
  26. FOSINOPRIL [Concomitant]
     Active Substance: FOSINOPRIL
  27. ARANESP [Concomitant]
     Active Substance: DARBEPOETIN ALFA
  28. PRILOSEC [Concomitant]
     Active Substance: OMEPRAZOLE MAGNESIUM
  29. CLONIDINE HCL [Concomitant]
     Active Substance: CLONIDINE HYDROCHLORIDE
  30. METOLAZONE. [Concomitant]
     Active Substance: METOLAZONE
  31. ALLOPURINOL. [Concomitant]
     Active Substance: ALLOPURINOL
  32. OPTIVE EYE DROPS [Concomitant]

REACTIONS (1)
  - Anaemia [Unknown]
